FAERS Safety Report 6902401-6 (Version None)
Quarter: 2010Q3

REPORT INFORMATION
  Report Type: 
  Country: None (occurrence: None)
  Receive Date: 20100803
  Receipt Date: 20080520
  Transmission Date: 20110219
  Serious: No
  Sender: FDA-Public Use
  Company Number: US-PFIZER INC-2008042045

PATIENT
  Sex: Female
  Weight: 87.1 kg

DRUGS (12)
  1. LYRICA [Suspect]
     Indication: NEUROPATHY PERIPHERAL
     Route: 048
     Dates: start: 20080513
  2. LYRICA [Suspect]
     Indication: AXILLARY NERVE INJURY
  3. TEGRETOL [Concomitant]
  4. STELAZINE [Concomitant]
  5. VERAPAMIL [Concomitant]
  6. HYDROCHLOROTHIAZIDE [Concomitant]
  7. PREMARIN [Concomitant]
  8. LOTREL [Concomitant]
  9. NEXIUM [Concomitant]
  10. DONNATAL [Concomitant]
  11. FROVA [Concomitant]
  12. ULTRAM [Concomitant]

REACTIONS (5)
  - DIZZINESS [None]
  - DRY MOUTH [None]
  - FATIGUE [None]
  - INCREASED APPETITE [None]
  - SOMNOLENCE [None]
